FAERS Safety Report 4474442-2 (Version None)
Quarter: 2004Q4

REPORT INFORMATION
  Report Type: 
  Country: None (occurrence: None)
  Receive Date: 20041012
  Receipt Date: 20040927
  Transmission Date: 20050328
  Serious: Yes (Other)
  Sender: FDA-Public Use
  Company Number: 2004-BP-06126NB

PATIENT
  Age: 67 Year
  Sex: Female

DRUGS (4)
  1. BI-SIFROL TABLETS (PRAMIPEXOLE DIHYDROCHLORIDE) (TA) [Suspect]
     Indication: PARKINSON'S DISEASE
     Dosage: 0.25 MG, PO
     Route: 048
     Dates: start: 20040715, end: 20040721
  2. MADOPAR (MADOPAR) (TA) [Concomitant]
  3. NAUZELIN (DOMPERIDONE) (TA) [Concomitant]
  4. LIPOVAS (TA) [Concomitant]

REACTIONS (2)
  - LEUKOPENIA [None]
  - RASH [None]
